FAERS Safety Report 4285866-0 (Version None)
Quarter: 2004Q1

REPORT INFORMATION
  Report Type: 
  Country: None (occurrence: None)
  Receive Date: 20040204
  Receipt Date: 20040204
  Transmission Date: 20041129
  Serious: Yes (Life-Threatening)
  Sender: FDA-Public Use
  Company Number: None

PATIENT
  Age: 33 Year
  Sex: Female

DRUGS (3)
  1. REMICADE [Suspect]
     Indication: RHEUMATOID ARTHRITIS
     Dosage: 300 MG IV EVERY 6 WEEKS
     Route: 042
     Dates: start: 20020813, end: 20021217
  2. FOLIC ACID [Concomitant]
  3. VIOXX [Concomitant]

REACTIONS (10)
  - BODY TEMPERATURE INCREASED [None]
  - DRUG TOXICITY [None]
  - DYSPNOEA [None]
  - HEPATIC ENZYME INCREASED [None]
  - HISTOPLASMOSIS DISSEMINATED [None]
  - LUNG INFILTRATION [None]
  - OBSTRUCTIVE AIRWAYS DISORDER [None]
  - PLEURAL EFFUSION [None]
  - TACHYCARDIA [None]
  - THROMBOCYTOPENIA [None]
